FAERS Safety Report 9938167 (Version 1)
Quarter: 2014Q1

REPORT INFORMATION
  Report Type: Report from Study
  Country: US (occurrence: US)
  Receive Date: 20140303
  Receipt Date: 20140303
  Transmission Date: 20141002
  Serious: Yes (Death, Other)
  Sender: FDA-Public Use
  Company Number: US-ROCHE-1353339

PATIENT
  Sex: 0

DRUGS (4)
  1. MYCOPHENOLATE MOFETIL [Suspect]
     Indication: PROPHYLAXIS
     Route: 065
  2. TACROLIMUS [Suspect]
     Indication: PROPHYLAXIS
     Route: 065
  3. PREDNISONE [Suspect]
     Indication: PROPHYLAXIS
     Route: 065
  4. AZATHIOPRINE [Suspect]
     Indication: PROPHYLAXIS
     Route: 065

REACTIONS (31)
  - Death [Fatal]
  - Graft loss [Unknown]
  - Haemodialysis [Unknown]
  - Sepsis [Unknown]
  - Gastritis viral [Unknown]
  - Gastritis bacterial [Unknown]
  - Vomiting [Unknown]
  - Diarrhoea [Unknown]
  - Dyspepsia [Unknown]
  - Abdominal pain [Unknown]
  - Gastrointestinal haemorrhage [Unknown]
  - Constipation [Unknown]
  - Urinary tract infection [Unknown]
  - Otitis media acute [Unknown]
  - Respiratory tract infection [Unknown]
  - Pyelonephritis [Unknown]
  - Varicella [Unknown]
  - Anaemia [Unknown]
  - Leukopenia [Unknown]
  - Thrombocytopenia [Unknown]
  - Oedema peripheral [Unknown]
  - Limb deformity [Unknown]
  - Osteochondrosis [Unknown]
  - Psychotic disorder due to a general medical condition [Unknown]
  - Fungal skin infection [Unknown]
  - Oral infection [Unknown]
  - Skin lesion [Unknown]
  - Skin bacterial infection [Unknown]
  - Dermatitis allergic [Unknown]
  - Pruritus [Unknown]
  - Disease recurrence [Unknown]
